FAERS Safety Report 7026553-5 (Version None)
Quarter: 2010Q4

REPORT INFORMATION
  Report Type: 
  Country: None (occurrence: None)
  Receive Date: 20101004
  Receipt Date: 20100923
  Transmission Date: 20110411
  Serious: Yes (Other)
  Sender: FDA-Public Use
  Company Number: AT-SANOFI-AVENTIS-2010SA057069

PATIENT
  Age: 84 Year
  Sex: Male

DRUGS (8)
  1. LOVENOX [Suspect]
     Indication: ATRIAL FIBRILLATION
     Route: 058
     Dates: end: 20100101
  2. BERODUAL [Concomitant]
     Route: 055
  3. DIGIMERCK [Concomitant]
     Route: 048
  4. HYPREN [Concomitant]
     Route: 048
  5. LASIX [Concomitant]
     Route: 048
  6. SEROQUEL [Concomitant]
     Route: 048
  7. VENOSIN [Concomitant]
     Route: 048
  8. PANTOPRAZOLE [Concomitant]
     Route: 048

REACTIONS (4)
  - AGGRESSION [None]
  - CONFUSIONAL STATE [None]
  - OFF LABEL USE [None]
  - PSYCHOTIC DISORDER [None]
